FAERS Safety Report 23568550 (Version 4)
Quarter: 2024Q2

REPORT INFORMATION
  Report Type: Report from Study
  Country: US (occurrence: US)
  Receive Date: 20240227
  Receipt Date: 20240628
  Transmission Date: 20240716
  Serious: No
  Sender: FDA-Public Use
  Company Number: US-ACADIA PHARMACEUTICALS INC.-ACA-2024-TRF-000555

PATIENT
  Age: 32 Year
  Sex: Female

DRUGS (2)
  1. DAYBUE [Suspect]
     Active Substance: TROFINETIDE
     Indication: Rett syndrome
     Dosage: 25 MILLILITER, BID
     Route: 048
     Dates: end: 20240203
  2. DAYBUE [Suspect]
     Active Substance: TROFINETIDE
     Dosage: 25 MILLILITER, BID
     Route: 048
     Dates: start: 20240206, end: 202405

REACTIONS (10)
  - Weight decreased [Not Recovered/Not Resolved]
  - Product packaging difficult to open [Recovered/Resolved]
  - Product dose omission issue [Recovered/Resolved]
  - Constipation [Recovered/Resolved]
  - Faeces soft [Not Recovered/Not Resolved]
  - Conjunctivitis [Unknown]
  - Intentional dose omission [Unknown]
  - Upper respiratory tract infection [Recovered/Resolved]
  - Peripheral swelling [Recovered/Resolved]
  - Decreased appetite [Not Recovered/Not Resolved]

NARRATIVE: CASE EVENT DATE: 20240203
